FAERS Safety Report 19455207 (Version 3)
Quarter: 2023Q4

REPORT INFORMATION
  Report Type: Spontaneous
  Country: GB (occurrence: GB)
  Receive Date: 20210623
  Receipt Date: 20231027
  Transmission Date: 20240109
  Serious: Yes (Death, Congenital Anomaly, Other)
  Sender: FDA-Public Use
  Company Number: GB-EISAI MEDICAL RESEARCH-EC-2021-093572

PATIENT

DRUGS (4)
  1. CLOBAZAM [Suspect]
     Active Substance: CLOBAZAM
     Indication: Foetal exposure during pregnancy
     Dosage: 20 MG, QD
     Route: 064
  2. LAMOTRIGINE [Suspect]
     Active Substance: LAMOTRIGINE
     Indication: Foetal exposure during pregnancy
     Dosage: DOSE AND FREQUENCY NOT PROVIDED
     Route: 064
  3. VALPROIC ACID [Suspect]
     Active Substance: VALPROIC ACID
     Indication: Foetal exposure during pregnancy
     Dosage: DOSE AND FREQUENCY NOT PROVIDED
     Route: 064
  4. ZONISAMIDE [Suspect]
     Active Substance: ZONISAMIDE
     Indication: Foetal exposure during pregnancy
     Dosage: DOSE AND FREQUENCY NOT PROVIDED
     Route: 064

REACTIONS (2)
  - Spina bifida [Fatal]
  - Foetal exposure during pregnancy [Unknown]
